FAERS Safety Report 6801156-3 (Version None)
Quarter: 2010Q2

REPORT INFORMATION
  Report Type: 
  Country: None (occurrence: None)
  Receive Date: 20100629
  Receipt Date: 20100617
  Transmission Date: 20101027
  Serious: Yes (Other)
  Sender: FDA-Public Use
  Company Number: CN-PFIZER INC-2010063753

PATIENT
  Age: 50 Year
  Sex: Female

DRUGS (3)
  1. DIFLUCAN [Suspect]
     Indication: INFECTION
     Dosage: 800 MG, 1X/DAY
     Route: 042
     Dates: start: 20100101, end: 20100101
  2. DIFLUCAN [Suspect]
     Dosage: 400 MG, 1X/DAY
     Route: 042
     Dates: start: 20100101
  3. CEFOPERAZONE SODIUM/SULBACTAM SODIUM [Concomitant]
     Dosage: UNK

REACTIONS (1)
  - PSYCHIATRIC SYMPTOM [None]
